FAERS Safety Report 20152907 (Version 1)
Quarter: 2021Q4

REPORT INFORMATION
  Report Type: Spontaneous
  Country: VE (occurrence: VE)
  Receive Date: 20211206
  Receipt Date: 20211206
  Transmission Date: 20220303
  Serious: Yes (Hospitalization)
  Sender: FDA-Public Use
  Company Number: VE-BAYER-2021A260993

PATIENT
  Age: 26 Year
  Sex: Male

DRUGS (1)
  1. CHLOROQUINE [Suspect]
     Active Substance: CHLOROQUINE
     Indication: COVID-19
     Dosage: 300 MG, BID
     Route: 048

REACTIONS (2)
  - Psychotic disorder [Recovered/Resolved]
  - Off label use [None]
